FAERS Safety Report 7612019-8 (Version None)
Quarter: 2011Q3

REPORT INFORMATION
  Report Type: 
  Country: None (occurrence: None)
  Receive Date: 20110715
  Receipt Date: 20110708
  Transmission Date: 20111222
  Serious: Yes (Hospitalization)
  Sender: FDA-Public Use
  Company Number: JP-CEPHALON-2011003727

PATIENT
  Sex: Female
  Weight: 43 kg

DRUGS (7)
  1. CEFOTIAM HYDROCHLORIDE [Concomitant]
     Dates: start: 20110223, end: 20110422
  2. RITUXIMAB [Suspect]
     Route: 042
     Dates: start: 20110316, end: 20110316
  3. CEFTAZIDIME [Concomitant]
     Dates: start: 20110228
  4. BENDAMUSTINE HCL [Suspect]
     Route: 042
     Dates: start: 20110317, end: 20110318
  5. BENDAMUSTINE HCL [Suspect]
     Indication: B-CELL LYMPHOMA
     Route: 042
     Dates: start: 20110208, end: 20110209
  6. RITUXIMAB [Suspect]
     Indication: B-CELL LYMPHOMA
     Route: 042
     Dates: start: 20110207, end: 20110207
  7. DIGOXIN [Concomitant]

REACTIONS (3)
  - PYREXIA [None]
  - PANCYTOPENIA [None]
  - CYTOMEGALOVIRUS INFECTION [None]
